FAERS Safety Report 6194097-9 (Version None)
Quarter: 2009Q2

REPORT INFORMATION
  Report Type: 
  Country: None (occurrence: None)
  Receive Date: 20090518
  Receipt Date: 20090514
  Transmission Date: 20091009
  Serious: Yes (Hospitalization, Disabling, Other)
  Sender: FDA-Public Use
  Company Number: IN-WYE-H06833008

PATIENT
  Sex: Female
  Weight: 53 kg

DRUGS (4)
  1. TEMSIROLIMUS [Suspect]
     Indication: METASTATIC RENAL CELL CARCINOMA
     Route: 042
     Dates: start: 20080930, end: 20081113
  2. TEMSIROLIMUS [Suspect]
     Route: 042
     Dates: start: 20081118, end: 20081118
  3. ACTRAPID HUMAN [Concomitant]
     Indication: HYPERGLYCAEMIA
     Dosage: SLIDING SCALE
     Route: 065
     Dates: start: 20081112, end: 20081115
  4. BEVACIZUMAB, TEST ARTICLE IN TEMSIROLIMUS STUDY [Suspect]
     Indication: METASTATIC RENAL CELL CARCINOMA
     Route: 042
     Dates: start: 20080930, end: 20081118

REACTIONS (2)
  - DIABETES MELLITUS [None]
  - KETOSIS [None]
